FAERS Safety Report 14203574 (Version 3)
Quarter: 2018Q2

REPORT INFORMATION
  Report Type: Spontaneous
  Country: CR (occurrence: CR)
  Receive Date: 20171120
  Receipt Date: 20180425
  Transmission Date: 20180711
  Serious: Yes (Death, Hospitalization)
  Sender: FDA-Public Use
  Company Number: CR-ROCHE-2024807

PATIENT
  Age: 66 Year
  Sex: Female
  Weight: 55 kg

DRUGS (3)
  1. ACTEMRA [Suspect]
     Active Substance: TOCILIZUMAB
     Indication: RHEUMATOID ARTHRITIS
     Dosage: 220 MG TOTAL MONTHLY DOSE
     Route: 042
     Dates: start: 20151105
  2. H2 BLOCKERS (UNKNOWN BRAND) [Concomitant]
  3. METHOTREXATE. [Concomitant]
     Active Substance: METHOTREXATE

REACTIONS (2)
  - Duodenal ulcer perforation [Fatal]
  - Death [Fatal]

NARRATIVE: CASE EVENT DATE: 20171102
